FAERS Safety Report 10239586 (Version 5)
Quarter: 2015Q1

REPORT INFORMATION
  Report Type: Spontaneous
  Country: US (occurrence: US)
  Receive Date: 20140616
  Receipt Date: 20150204
  Transmission Date: 20150720
  Serious: Yes (Hospitalization, Disabling, Other)
  Sender: FDA-Public Use
  Company Number: US-009507513-1012USA01614

PATIENT
  Sex: Female

DRUGS (2)
  1. FOSAMAX [Suspect]
     Active Substance: ALENDRONATE SODIUM
     Indication: OSTEOPOROSIS
     Dosage: 70 MG, UNK
     Route: 048
     Dates: start: 20030107, end: 201003
  2. FOSAMAX [Suspect]
     Active Substance: ALENDRONATE SODIUM
     Indication: OSTEOPENIA
     Dosage: 10 MG, UNK
     Route: 048
     Dates: start: 199711, end: 20030107

REACTIONS (101)
  - Breast reconstruction [Unknown]
  - Wound infection [Unknown]
  - Tooth infection [Unknown]
  - Abscess [Unknown]
  - Melanosis coli [Unknown]
  - Asthma [Unknown]
  - Tendon disorder [Unknown]
  - Tooth abscess [Unknown]
  - Trismus [Unknown]
  - Tooth extraction [Unknown]
  - Tooth abscess [Unknown]
  - Connective tissue disorder [Unknown]
  - Breast prosthesis implantation [Unknown]
  - Hernia [Not Recovered/Not Resolved]
  - Intervertebral disc degeneration [Unknown]
  - Sinusitis [Unknown]
  - Breast mass [Unknown]
  - Milia [Unknown]
  - Dental implantation [Unknown]
  - Gingivectomy [Unknown]
  - Immunoglobulins decreased [Unknown]
  - Gastrooesophageal reflux disease [Unknown]
  - Tooth fracture [Unknown]
  - Cellulitis [Unknown]
  - Actinic keratosis [Not Recovered/Not Resolved]
  - Hepatic cyst [Unknown]
  - Rosacea [Unknown]
  - Oral infection [Not Recovered/Not Resolved]
  - Exostosis [Not Recovered/Not Resolved]
  - Fistula discharge [Unknown]
  - Oral surgery [Unknown]
  - Debridement [Unknown]
  - Hypoaesthesia [Unknown]
  - Paraesthesia [Unknown]
  - Debridement [Unknown]
  - Debridement [Unknown]
  - Debridement [Recovering/Resolving]
  - Bone trimming [Unknown]
  - Breast reconstruction [Unknown]
  - Pseudomonas infection [Unknown]
  - Mastitis [Unknown]
  - Bladder disorder [Unknown]
  - Infection [Unknown]
  - Gingivitis [Unknown]
  - Hot flush [Unknown]
  - Rib fracture [Unknown]
  - Melanocytic naevus [Unknown]
  - Gingival disorder [Not Recovered/Not Resolved]
  - Abscess [Not Recovered/Not Resolved]
  - Apicectomy [Unknown]
  - Bone fragmentation [Unknown]
  - Tooth fracture [Unknown]
  - Peripheral swelling [Unknown]
  - Treatment failure [Unknown]
  - Knee arthroplasty [Unknown]
  - Hypersensitivity [Unknown]
  - Iron deficiency anaemia [Unknown]
  - Bursitis [Unknown]
  - Exostosis [Unknown]
  - Dental care [Unknown]
  - Rheumatoid arthritis [Unknown]
  - Nausea [Unknown]
  - Staphylococcal infection [Unknown]
  - Wound [Unknown]
  - Osteomyelitis [Unknown]
  - Osteonecrosis of jaw [Not Recovered/Not Resolved]
  - Tongue geographic [Unknown]
  - Meniscus injury [Unknown]
  - Scoliosis [Unknown]
  - Tooth extraction [Unknown]
  - Dental caries [Recovered/Resolved]
  - Oral herpes [Not Recovered/Not Resolved]
  - Oral surgery [Unknown]
  - Seasonal allergy [Not Recovered/Not Resolved]
  - Dry eye [Unknown]
  - Breast reconstruction [Unknown]
  - Basal cell carcinoma [Unknown]
  - Bone loss [Unknown]
  - Diverticulum [Unknown]
  - Food allergy [Unknown]
  - Haemorrhoids [Unknown]
  - Depression [Not Recovered/Not Resolved]
  - Periodontal operation [Unknown]
  - Debridement [Unknown]
  - Spinal osteoarthritis [Unknown]
  - Alopecia [Unknown]
  - Wound dehiscence [Unknown]
  - Knee arthroplasty [Unknown]
  - Eczema [Unknown]
  - Laryngitis [Unknown]
  - Cerebral small vessel ischaemic disease [Unknown]
  - Fistula [Unknown]
  - Tooth infection [Unknown]
  - Periodontal disease [Not Recovered/Not Resolved]
  - Endodontic procedure [Unknown]
  - Dental caries [Unknown]
  - Tooth infection [Not Recovered/Not Resolved]
  - Osteoarthritis [Unknown]
  - Muscle strain [Unknown]
  - Drug ineffective [Unknown]
  - Diarrhoea [Unknown]

NARRATIVE: CASE EVENT DATE: 19971208
